FAERS Safety Report 26044794 (Version 1)
Quarter: 2025Q4

REPORT INFORMATION
  Report Type: Spontaneous
  Country: CN (occurrence: CN)
  Receive Date: 20251114
  Receipt Date: 20251114
  Transmission Date: 20260117
  Serious: Yes (Other)
  Sender: ACCORD
  Company Number: CN-Accord-512348

PATIENT
  Age: 68 Year
  Sex: Male

DRUGS (4)
  1. AZACITIDINE [Suspect]
     Active Substance: AZACITIDINE
     Indication: Acute myeloid leukaemia
     Dosage: ON DAYS 1 TO 7
     Route: 058
     Dates: start: 20200402, end: 20200408
  2. HYDROCORTISONE [Suspect]
     Active Substance: HYDROCORTISONE
     Indication: Acute myeloid leukaemia
     Dosage: 50 MG EVERY 12
     Dates: start: 20200402, end: 20200408
  3. AZACITIDINE [Suspect]
     Active Substance: AZACITIDINE
     Indication: Plasma cell myeloma
     Dosage: ON DAYS 1 TO 7
     Route: 058
     Dates: start: 20200402, end: 20200408
  4. HYDROCORTISONE [Suspect]
     Active Substance: HYDROCORTISONE
     Indication: Plasma cell myeloma
     Dosage: 50 MG EVERY 12
     Dates: start: 20200402, end: 20200408

REACTIONS (2)
  - Pancytopenia [Unknown]
  - Brain abscess [Unknown]
